FAERS Safety Report 6726974-1 (Version None)
Quarter: 2010Q2

REPORT INFORMATION
  Report Type: 
  Country: None (occurrence: None)
  Receive Date: 20100517
  Receipt Date: 20100511
  Transmission Date: 20101027
  Serious: No
  Sender: FDA-Public Use
  Company Number: US-BIOGENIDEC-2010BI015482

PATIENT
  Age: 35 Year
  Sex: Female

DRUGS (4)
  1. AVONEX [Suspect]
     Indication: MULTIPLE SCLEROSIS
     Route: 030
     Dates: start: 20100404, end: 20100404
  2. AVONEX [Suspect]
     Route: 030
     Dates: start: 20100411, end: 20100411
  3. AVONEX [Suspect]
     Route: 030
     Dates: start: 20100418, end: 20100418
  4. AVONEX [Suspect]
     Route: 030
     Dates: start: 20100425, end: 20100502

REACTIONS (2)
  - HEADACHE [None]
  - SENSORY DISTURBANCE [None]
